FAERS Safety Report 8828685 (Version 1)
Quarter: 2012Q4

REPORT INFORMATION
  Report Type: Spontaneous
  Country: US (occurrence: None)
  Receive Date: 20121004
  Receipt Date: 20121004
  Transmission Date: 20130627
  Serious: Yes (Hospitalization)
  Sender: FDA-Public Use
  Company Number: 2012S1006212

PATIENT
  Age: 95 Year
  Sex: Female

DRUGS (12)
  1. GLYCERIN LAXATIVE [Suspect]
     Route: 054
     Dates: start: 20120918, end: 20120918
  2. NAPROSYN /00256201/ [Concomitant]
  3. SYNTHROID [Concomitant]
  4. LOPRESSOR [Concomitant]
  5. AMBIEN [Concomitant]
  6. ASPIRIN LOW [Concomitant]
  7. NOVOLIN [Concomitant]
  8. COLACE [Concomitant]
  9. ZOCOR [Concomitant]
  10. DEPAKOTE [Concomitant]
  11. DESYREL [Concomitant]
  12. VICODIN [Concomitant]

REACTIONS (3)
  - Haematochezia [None]
  - Abdominal pain [None]
  - Dehydration [None]
